FAERS Safety Report 5025167-6 (Version None)
Quarter: 2006Q2

REPORT INFORMATION
  Report Type: 
  Country: None (occurrence: None)
  Receive Date: 20060613
  Receipt Date: 20060607
  Transmission Date: 20061013
  Serious: Yes (Hospitalization)
  Sender: FDA-Public Use
  Company Number: US-GLAXOSMITHKLINE-A0608243A

PATIENT
  Age: 32 Year
  Sex: Female

DRUGS (3)
  1. LAMICTAL [Suspect]
     Indication: BIPOLAR DISORDER
     Dosage: 150MG PER DAY
     Route: 048
     Dates: start: 20050801, end: 20051001
  2. BRETHINE [Concomitant]
  3. ANTIBIOTICS [Concomitant]

REACTIONS (4)
  - BLOOD POTASSIUM DECREASED [None]
  - NORMAL DELIVERY [None]
  - PRE-ECLAMPSIA [None]
  - PREMATURE LABOUR [None]
